FAERS Safety Report 8515973-5 (Version None)
Quarter: 2012Q3

REPORT INFORMATION
  Report Type: 
  Country: None (occurrence: None)
  Receive Date: 20120717
  Receipt Date: 20120713
  Transmission Date: 20120928
  Serious: No
  Sender: FDA-Public Use
  Company Number: US-PFIZER INC-2012144168

PATIENT
  Sex: Female

DRUGS (3)
  1. NEURONTIN [Suspect]
     Indication: PAIN
     Dosage: 600 MG, 3X/DAY
     Route: 048
     Dates: start: 20060523
  2. TIZANIDINE [Concomitant]
     Dosage: 8 MG, 3X/DAY (4 MG, 2 TABS TID)
  3. HYDROCODONE [Concomitant]
     Dosage: UNK, (DOSE UNKNOWN, PRN)

REACTIONS (1)
  - DRUG INEFFECTIVE [None]
